FAERS Safety Report 17649147 (Version 6)
Quarter: 2022Q4

REPORT INFORMATION
  Report Type: Report from Study
  Country: CA (occurrence: CA)
  Receive Date: 20200408
  Receipt Date: 20221002
  Transmission Date: 20230113
  Serious: Yes (Other)
  Sender: FDA-Public Use
  Company Number: PHHY2017CA116024

PATIENT
  Sex: Male

DRUGS (28)
  1. XOLAIR [Suspect]
     Active Substance: OMALIZUMAB
     Indication: Asthma
     Dosage: 225 MG, BIW
     Route: 058
     Dates: start: 20170801
  2. XOLAIR [Suspect]
     Active Substance: OMALIZUMAB
     Dosage: UNK
     Route: 058
     Dates: start: 20170927
  3. XOLAIR [Suspect]
     Active Substance: OMALIZUMAB
     Dosage: UNK
     Route: 058
     Dates: start: 20171129
  4. XOLAIR [Suspect]
     Active Substance: OMALIZUMAB
     Dosage: UNK
     Route: 058
     Dates: start: 20171227
  5. XOLAIR [Suspect]
     Active Substance: OMALIZUMAB
     Dosage: UNK
     Route: 058
     Dates: start: 20180110
  6. XOLAIR [Suspect]
     Active Substance: OMALIZUMAB
     Dosage: UNK
     Route: 058
     Dates: start: 20180207
  7. XOLAIR [Suspect]
     Active Substance: OMALIZUMAB
     Dosage: 225 MG, BIW
     Route: 058
     Dates: start: 20180404
  8. XOLAIR [Suspect]
     Active Substance: OMALIZUMAB
     Dosage: 225 MG, BIW
     Route: 058
     Dates: start: 20180420
  9. XOLAIR [Suspect]
     Active Substance: OMALIZUMAB
     Dosage: 225 MG, BIW
     Route: 058
     Dates: start: 20180516
  10. XOLAIR [Suspect]
     Active Substance: OMALIZUMAB
     Dosage: 225 MG, BIW
     Route: 058
     Dates: start: 20180531
  11. XOLAIR [Suspect]
     Active Substance: OMALIZUMAB
     Dosage: 225 MG, BIW
     Route: 058
     Dates: start: 20180711
  12. XOLAIR [Suspect]
     Active Substance: OMALIZUMAB
     Dosage: 225 MG BIW
     Route: 058
     Dates: start: 20180810
  13. XOLAIR [Suspect]
     Active Substance: OMALIZUMAB
     Dosage: 225 MG, BIW
     Route: 058
     Dates: start: 20180906
  14. XOLAIR [Suspect]
     Active Substance: OMALIZUMAB
     Dosage: 225 MG, BIW
     Route: 058
     Dates: start: 20181129
  15. XOLAIR [Suspect]
     Active Substance: OMALIZUMAB
     Dosage: 225 MG, BIW
     Route: 058
     Dates: start: 20181227
  16. XOLAIR [Suspect]
     Active Substance: OMALIZUMAB
     Dosage: 225 MG, BIW
     Route: 058
     Dates: start: 20190221
  17. XOLAIR [Suspect]
     Active Substance: OMALIZUMAB
     Dosage: 225 MG, BIW
     Route: 058
     Dates: end: 20190502
  18. XOLAIR [Suspect]
     Active Substance: OMALIZUMAB
     Dosage: 225 MG, BIW
     Route: 058
     Dates: start: 20200413
  19. XOLAIR [Suspect]
     Active Substance: OMALIZUMAB
     Dosage: 225 MG, BIW
     Route: 058
     Dates: start: 20200413, end: 20220113
  20. CLARITHROMYCIN [Suspect]
     Active Substance: CLARITHROMYCIN
     Indication: Product used for unknown indication
     Dosage: UNK
     Route: 065
  21. VENTOLIN [Concomitant]
     Active Substance: ALBUTEROL SULFATE
     Indication: Asthma
     Dosage: 1 DF, BID
     Dates: start: 2008
  22. ADVAIR HFA [Concomitant]
     Active Substance: FLUTICASONE PROPIONATE\SALMETEROL XINAFOATE
     Indication: Asthma
     Dosage: 2 DF, BID
     Dates: start: 2015
  23. SINGULAIR [Concomitant]
     Active Substance: MONTELUKAST SODIUM
     Indication: Asthma
     Dosage: 1 DF, QD
     Route: 048
  24. CROMOLYN [Concomitant]
     Active Substance: CROMOLYN
     Indication: Asthma
     Dosage: 1 DF, TID (AMPULE)
     Dates: start: 2016
  25. NEXIUM [Concomitant]
     Active Substance: ESOMEPRAZOLE MAGNESIUM
     Indication: Gastrooesophageal reflux disease
     Dosage: 1 DF, QD
     Route: 048
  26. ZENHALE [Concomitant]
     Active Substance: FORMOTEROL FUMARATE\MOMETASONE FUROATE
     Indication: Product used for unknown indication
     Dosage: 1 DF, QHS
     Route: 065
  27. ZENHALE [Concomitant]
     Active Substance: FORMOTEROL FUMARATE\MOMETASONE FUROATE
     Dosage: 2 DF, BID
     Dates: start: 2019
  28. ALVESCO [Concomitant]
     Active Substance: CICLESONIDE
     Indication: Product used for unknown indication
     Dosage: 1 DF (100 UG/PUFF), UNK
     Route: 065

REACTIONS (53)
  - Impaired gastric emptying [Unknown]
  - Anaphylactic reaction [Unknown]
  - Feeling abnormal [Unknown]
  - Contusion [Not Recovered/Not Resolved]
  - Haematoma [Unknown]
  - Chest pain [Unknown]
  - Illness [Not Recovered/Not Resolved]
  - Sneezing [Unknown]
  - Nasopharyngitis [Recovered/Resolved]
  - Nasal congestion [Not Recovered/Not Resolved]
  - Rhinorrhoea [Recovered/Resolved]
  - Nasopharyngitis [Unknown]
  - Eosinophilic oesophagitis [Unknown]
  - Gastrooesophageal reflux disease [Unknown]
  - Gastrointestinal disorder [Unknown]
  - Gastrointestinal hypomotility [Unknown]
  - Viral infection [Unknown]
  - Headache [Unknown]
  - Pyrexia [Unknown]
  - Temperature intolerance [Unknown]
  - Frostbite [Unknown]
  - Dyspnoea [Recovering/Resolving]
  - Abdominal pain upper [Unknown]
  - Rhinorrhoea [Unknown]
  - Neutrophil count increased [Unknown]
  - C-reactive protein increased [Unknown]
  - Vomiting [Unknown]
  - Bronchospasm [Unknown]
  - Forced expiratory volume decreased [Unknown]
  - Heart rate increased [Unknown]
  - Pyrexia [Recovered/Resolved]
  - Headache [Recovered/Resolved]
  - Fatigue [Recovering/Resolving]
  - Headache [Recovered/Resolved]
  - Cough [Not Recovered/Not Resolved]
  - Dyspepsia [Unknown]
  - Weight increased [Unknown]
  - Headache [Recovered/Resolved]
  - Dizziness [Unknown]
  - Headache [Recovered/Resolved]
  - Pain in extremity [Unknown]
  - Asthma [Unknown]
  - Drug hypersensitivity [Unknown]
  - Food allergy [Unknown]
  - Injection site swelling [Not Recovered/Not Resolved]
  - Injection site bruising [Unknown]
  - Injection site pain [Recovering/Resolving]
  - Injection site erythema [Unknown]
  - Injection site haemorrhage [Unknown]
  - Product dose omission issue [Unknown]
  - Incorrect route of product administration [Unknown]
  - Incorrect dose administered [Unknown]
  - Anxiety [Unknown]

NARRATIVE: CASE EVENT DATE: 20170101
